FAERS Safety Report 22066993 (Version 1)
Quarter: 2023Q1

REPORT INFORMATION
  Report Type: Spontaneous
  Country: US (occurrence: US)
  Receive Date: 20230306
  Receipt Date: 20230306
  Transmission Date: 20230418
  Serious: No
  Sender: FDA-Public Use
  Company Number: US-PLXPHARMA-2022-PLX-00063

PATIENT

DRUGS (1)
  1. VAZALORE [Suspect]
     Active Substance: ASPIRIN
     Indication: Back disorder
     Dosage: 1 CAPSULE DURING THE DAY AND 2 CAPSULES AT NIGHT
     Route: 048
     Dates: start: 202207, end: 202207

REACTIONS (3)
  - Dysgeusia [Unknown]
  - Product leakage [Unknown]
  - Product odour abnormal [Unknown]

NARRATIVE: CASE EVENT DATE: 20220701
